FAERS Safety Report 6987072-5 (Version None)
Quarter: 2010Q3

REPORT INFORMATION
  Report Type: 
  Country: None (occurrence: None)
  Receive Date: 20100916
  Receipt Date: 20100910
  Transmission Date: 20110219
  Serious: Yes (Other)
  Sender: FDA-Public Use
  Company Number: US-BAYER-201033412NA

PATIENT
  Age: 16 Year
  Sex: Female

DRUGS (2)
  1. YAZ [Suspect]
     Indication: CONTRACEPTION
     Dates: start: 20040301, end: 20050601
  2. YASMIN [Suspect]
     Indication: CONTRACEPTION
     Dates: start: 20040301, end: 20050601

REACTIONS (2)
  - CHOLECYSTECTOMY [None]
  - PAIN [None]
